FAERS Safety Report 22693043 (Version 2)
Quarter: 2024Q3

REPORT INFORMATION
  Report Type: Spontaneous
  Country: US (occurrence: US)
  Receive Date: 20230711
  Receipt Date: 20240722
  Transmission Date: 20241016
  Serious: No
  Sender: ASTELLAS
  Company Number: US-ASTELLAS-2022US044290

PATIENT
  Sex: Female

DRUGS (2)
  1. MYRBETRIQ [Suspect]
     Active Substance: MIRABEGRON
     Indication: Urinary tract infection
     Route: 065
     Dates: start: 202212
  2. AZO [Concomitant]
     Active Substance: PHENAZOPYRIDINE HYDROCHLORIDE
     Indication: Urinary tract infection
     Dosage: UNK UNK, UNKNOWN FREQ.
     Route: 065

REACTIONS (2)
  - Pollakiuria [Unknown]
  - Off label use [Unknown]

NARRATIVE: CASE EVENT DATE: 20221201
